FAERS Safety Report 8605773-X (Version None)
Quarter: 2012Q3

REPORT INFORMATION
  Report Type: 
  Country: None (occurrence: None)
  Receive Date: 20120820
  Receipt Date: 20120818
  Transmission Date: 20120928
  Serious: Yes (Other)
  Sender: FDA-Public Use
  Company Number: US-PFIZER INC-2012202710

PATIENT
  Age: 26 Year
  Sex: Female
  Weight: 52.154 kg

DRUGS (7)
  1. CHANTIX [Suspect]
     Indication: SMOKING CESSATION THERAPY
     Dosage: 0.5 MG, 1X/DAY
     Route: 048
     Dates: start: 20120801, end: 20120801
  2. NORTRIPTYLINE [Concomitant]
     Indication: HEADACHE
     Dosage: UNK
  3. TRILEPTAL [Concomitant]
     Indication: DEPRESSION
     Dosage: UNK
  4. SAPHRIS [Concomitant]
     Indication: PSYCHOTIC DISORDER
     Dosage: UNK
  5. CHANTIX [Suspect]
     Dosage: 1 MG, 2X/DAY
     Route: 048
     Dates: start: 20120801
  6. AMBIEN [Concomitant]
     Indication: SLEEP DISORDER
     Dosage: UNK
  7. EFFEXOR [Concomitant]
     Indication: DEPRESSION
     Dosage: UNK

REACTIONS (1)
  - HALLUCINATION [None]
